FAERS Safety Report 4427349-0 (Version None)
Quarter: 2004Q3

REPORT INFORMATION
  Report Type: 
  Country: None (occurrence: None)
  Receive Date: 20040817
  Receipt Date: 20040805
  Transmission Date: 20050211
  Serious: Yes (Hospitalization)
  Sender: FDA-Public Use
  Company Number: AU-BRISTOL-MYERS SQUIBB COMPANY-12661369

PATIENT
  Age: 19 Year
  Sex: Male
  Weight: 90 kg

DRUGS (2)
  1. ABILIFY [Suspect]
     Indication: SCHIZOPHRENIA
     Route: 048
     Dates: start: 20040722, end: 20040805
  2. EDRONAX [Interacting]
     Indication: DEPRESSION
     Route: 048
     Dates: start: 20040514, end: 20040730

REACTIONS (7)
  - ADRENERGIC SYNDROME [None]
  - ANXIETY [None]
  - BLOOD CREATINE PHOSPHOKINASE INCREASED [None]
  - DRUG INTERACTION [None]
  - ECHOCARDIOGRAM ABNORMAL [None]
  - MYALGIA [None]
  - NERVOUSNESS [None]
